FAERS Safety Report 19140686 (Version 2)
Quarter: 2021Q2

REPORT INFORMATION
  Report Type: Report from Study
  Country: US (occurrence: US)
  Receive Date: 20210415
  Receipt Date: 20210507
  Transmission Date: 20210717
  Serious: Yes (Death, Hospitalization, Other)
  Sender: FDA-Public Use
  Company Number: US-GILEAD-2021-0524513

PATIENT
  Age: 73 Year
  Sex: Female

DRUGS (7)
  1. AMBRISENTAN [Concomitant]
     Active Substance: AMBRISENTAN
  2. METOPROL RETARD [Concomitant]
  3. RAMPRIL [Concomitant]
     Active Substance: RAMIPRIL
  4. ATORVASTATIN [Concomitant]
     Active Substance: ATORVASTATIN
  5. MULTAQ [Concomitant]
     Active Substance: DRONEDARONE
  6. ISOSORBIDE. [Concomitant]
     Active Substance: ISOSORBIDE
  7. AMBRISENTAN [Suspect]
     Active Substance: AMBRISENTAN
     Indication: PULMONARY ARTERIAL HYPERTENSION
     Dosage: 5 MG, QD
     Route: 065
     Dates: start: 20190313

REACTIONS (3)
  - Death [Fatal]
  - Intentional dose omission [Not Recovered/Not Resolved]
  - COVID-19 [Not Recovered/Not Resolved]

NARRATIVE: CASE EVENT DATE: 202103
